FAERS Safety Report 12713207 (Version 3)
Quarter: 2016Q3

REPORT INFORMATION
  Report Type: Report from Study
  Country: CA (occurrence: CA)
  Receive Date: 20160902
  Receipt Date: 20160921
  Transmission Date: 20161109
  Serious: Yes (Hospitalization)
  Sender: FDA-Public Use
  Company Number: CA-TAKEDA-2016TUS015309

PATIENT
  Age: 64 Year
  Sex: Female

DRUGS (2)
  1. VEDOLIZUMAB [Suspect]
     Active Substance: VEDOLIZUMAB
     Indication: COLITIS ULCERATIVE
     Dosage: 300 MG, UNK
     Route: 042
     Dates: start: 20160525
  2. LANACANE                           /00104701/ [Concomitant]
     Dosage: UNK

REACTIONS (2)
  - Neck injury [Unknown]
  - Road traffic accident [Unknown]

NARRATIVE: CASE EVENT DATE: 2016
